FAERS Safety Report 10163314 (Version 2)
Quarter: 2014Q2

REPORT INFORMATION
  Report Type: Report from Study
  Country: CA (occurrence: CA)
  Receive Date: 20140509
  Receipt Date: 20140509
  Transmission Date: 20141212
  Serious: Yes (Other)
  Sender: FDA-Public Use
  Company Number: CA-BRISTOL-MYERS SQUIBB COMPANY-19961036

PATIENT
  Age: 53 Year
  Sex: Female

DRUGS (5)
  1. ORENCIA [Suspect]
     Indication: RHEUMATOID ARTHRITIS
     Dosage: 1 DF = 750 UNITS?NEXT INFUSION SCHEDULED FOR 30-DEC-2013.
     Dates: start: 201305
  2. ADVIL [Concomitant]
  3. FOLIC ACID [Concomitant]
  4. VITAMIN B6 [Concomitant]
  5. METHOTREXATE [Concomitant]

REACTIONS (4)
  - Uterine leiomyoma [Unknown]
  - Menorrhagia [Unknown]
  - Headache [Unknown]
  - Fatigue [Unknown]
